FAERS Safety Report 9459743 (Version 1)
Quarter: 2013Q3

REPORT INFORMATION
  Report Type: Spontaneous
  Country: GB (occurrence: GB)
  Receive Date: 20130815
  Receipt Date: 20130815
  Transmission Date: 20140515
  Serious: Yes (Other)
  Sender: FDA-Public Use
  Company Number: GB-TEVA-423534ISR

PATIENT
  Age: 81 Year
  Sex: Female
  Weight: 72 kg

DRUGS (12)
  1. TERBINAFINE [Suspect]
     Indication: ONYCHOMYCOSIS
     Dosage: 250 MILLIGRAM DAILY;
     Route: 048
     Dates: start: 20130301, end: 20130423
  2. DEXAMETHASONE [Concomitant]
     Dosage: 2 MILLIGRAM DAILY; FIRST WEEK: 2 IN THE MORNING, THEN 1 IN THE MORNING ONWARDS.
     Dates: start: 201306
  3. LEVOTHYROXINE [Concomitant]
     Dosage: 25 MICROGRAM DAILY; LONGSTANDING MEDICATION
  4. LEVOTHYROXINE [Concomitant]
     Dosage: 50 MICROGRAM DAILY; LONGSTANDING MEDICATION TAKE IN THE MORNING
  5. BISOPROLOL [Concomitant]
     Dosage: 2.5 MILLIGRAM DAILY; LONGSTANDING MEDICATION
  6. FOLIC ACID [Concomitant]
     Dosage: 10 MILLIGRAM DAILY; LONGSTANDING MEDICATION
  7. SIMVASTATIN [Concomitant]
     Dosage: 40 MILLIGRAM DAILY; LONGSTANDING MEDICATION TAKE AT NIGHT
  8. CITALOPRAM [Concomitant]
     Dosage: 20 MILLIGRAM DAILY; LONGSTANDING MEDICATION
  9. ASPIRIN [Concomitant]
     Dosage: 75 MILLIGRAM DAILY; LONGSTANDING MEDICATION. DISPERSIBLE TABLET.
  10. HYDROXYZINE [Concomitant]
     Dosage: LONGSTANDING MEDICATION 1-2 AT NIGHT AS REQUIRED
  11. GLYCEROL [Concomitant]
     Dosage: LONGSTANDING MEDICATION 1-2 SPRAYS SUBLINGUAL AS REQUIRED.
     Route: 060
  12. FYBOGEL [Concomitant]
     Dosage: 7 GRAM DAILY; LONGSTANDING MEDICATION.TAKE AFTER FOOD. FORM OF ADMIN: EFFERVESCENT GRANULES
     Route: 048

REACTIONS (2)
  - Neutropenia [Recovering/Resolving]
  - Anaemia [Unknown]
